FAERS Safety Report 9629029 (Version 5)
Quarter: 2013Q4

REPORT INFORMATION
  Report Type: Spontaneous
  Country: IT (occurrence: IT)
  Receive Date: 20131017
  Receipt Date: 20131209
  Transmission Date: 20140711
  Serious: Yes (Other)
  Sender: FDA-Public Use
  Company Number: IT-PFIZER INC-2013296886

PATIENT
  Age: 23 Year
  Sex: Male
  Weight: 70 kg

DRUGS (4)
  1. ZOLOFT [Suspect]
     Dosage: 50 MG TABLET (TOOK 1 AND 1/2 DAILY)
     Route: 048
  2. ZOLOFT [Suspect]
     Dosage: 30 TABLETS, TOTAL
     Route: 048
     Dates: start: 20130913, end: 20130913
  3. MODALINA [Concomitant]
     Dosage: 2 MG, 3 TABLETS DAILY
     Route: 048
  4. MODALINA [Concomitant]
     Dosage: 20 TABLETS
     Route: 048
     Dates: start: 20130913, end: 20130913

REACTIONS (4)
  - Overdose [Recovering/Resolving]
  - Intentional self-injury [Recovering/Resolving]
  - Rhabdomyolysis [Recovering/Resolving]
  - Drug abuse [Unknown]
